FAERS Safety Report 4322913-1 (Version None)
Quarter: 2004Q1

REPORT INFORMATION
  Report Type: 
  Country: None (occurrence: None)
  Receive Date: 20040322
  Receipt Date: 20040202
  Transmission Date: 20041129
  Serious: Yes (Other)
  Sender: FDA-Public Use
  Company Number: 2004007199

PATIENT
  Sex: Female

DRUGS (2)
  1. VFEND [Suspect]
     Indication: ILL-DEFINED DISORDER
     Dosage: 400 MG (BID), ORAL
     Route: 048
     Dates: start: 20040101, end: 20040101
  2. GLYBURIDE [Suspect]
     Indication: DIABETES MELLITUS

REACTIONS (1)
  - HYPOGLYCAEMIA [None]
